FAERS Safety Report 23417535 (Version 1)
Quarter: 2024Q1

REPORT INFORMATION
  Report Type: Spontaneous
  Country: US (occurrence: US)
  Receive Date: 20240118
  Receipt Date: 20240118
  Transmission Date: 20240410
  Serious: Yes (Other)
  Sender: FDA-Public Use
  Company Number: ENDG23-03124

PATIENT

DRUGS (1)
  1. PERCOCET [Suspect]
     Active Substance: ACETAMINOPHEN\OXYCODONE HYDROCHLORIDE
     Indication: Product used for unknown indication
     Dosage: UNK UNKNOWN, UNKNOWN
     Route: 065
     Dates: start: 2022

REACTIONS (17)
  - Withdrawal syndrome [Unknown]
  - Pollakiuria [Unknown]
  - Feeling abnormal [Unknown]
  - Eye irritation [Unknown]
  - Illness [Unknown]
  - Pain [Not Recovered/Not Resolved]
  - Altered state of consciousness [Unknown]
  - Abdominal discomfort [Unknown]
  - Dizziness [Unknown]
  - Diarrhoea [Unknown]
  - Hypertension [Not Recovered/Not Resolved]
  - Headache [Unknown]
  - Somnolence [Unknown]
  - Drug ineffective [Unknown]
  - Product formulation issue [Unknown]
  - Product substitution issue [Unknown]
  - Suspected counterfeit product [Unknown]

NARRATIVE: CASE EVENT DATE: 20230101
